FAERS Safety Report 10176547 (Version 1)
Quarter: 2014Q2

REPORT INFORMATION
  Report Type: Spontaneous
  Country: CN (occurrence: CN)
  Receive Date: 20140516
  Receipt Date: 20140516
  Transmission Date: 20141212
  Serious: Yes (Hospitalization)
  Sender: FDA-Public Use
  Company Number: CN-BAYER-2014-068167

PATIENT
  Age: 65 Year
  Sex: Male
  Weight: 70 kg

DRUGS (1)
  1. GLUCOBAY [Suspect]
     Dosage: 1 DF, TID
     Route: 048
     Dates: start: 20130515, end: 20130526

REACTIONS (2)
  - Hypoproteinaemia [Recovered/Resolved]
  - Generalised oedema [Recovered/Resolved]
